FAERS Safety Report 15336500 (Version 3)
Quarter: 2018Q4

REPORT INFORMATION
  Report Type: Report from Study
  Country: US (occurrence: US)
  Receive Date: 20180830
  Receipt Date: 20181003
  Transmission Date: 20190204
  Serious: Yes (Death, Life-Threatening, Hospitalization)
  Sender: FDA-Public Use
  Company Number: US-EXELIXIS-CABO-18015612

PATIENT
  Age: 53 Year
  Sex: Female

DRUGS (8)
  1. CETIRIZINE [Concomitant]
     Active Substance: CETIRIZINE HYDROCHLORIDE
     Dosage: UNK
  2. PRAVASTATIN. [Concomitant]
     Active Substance: PRAVASTATIN
     Dosage: UNK
  3. ZANTAC [Concomitant]
     Active Substance: RANITIDINE HYDROCHLORIDE
     Dosage: UNK
  4. CABOMETYX [Suspect]
     Active Substance: CABOZANTINIB S-MALATE
     Indication: METASTATIC RENAL CELL CARCINOMA
     Dosage: 60 MG, QD
     Route: 048
     Dates: start: 20180609, end: 20180712
  5. LEVOTHYROXINE. [Concomitant]
     Active Substance: LEVOTHYROXINE
     Dosage: UNK
  6. OPDIVO [Suspect]
     Active Substance: NIVOLUMAB
     Indication: METASTATIC RENAL CELL CARCINOMA
     Dosage: 480 MG ONCE
     Route: 042
     Dates: start: 20180613, end: 20180613
  7. METOPROLOL. [Concomitant]
     Active Substance: METOPROLOL
     Dosage: UNK
  8. FLONAX [Concomitant]
     Dosage: UNK

REACTIONS (6)
  - Toxic epidermal necrolysis [Fatal]
  - Clostridium difficile colitis [Recovered/Resolved with Sequelae]
  - Streptococcal bacteraemia [Recovered/Resolved with Sequelae]
  - Multiple organ dysfunction syndrome [Fatal]
  - Pulmonary embolism [Recovered/Resolved with Sequelae]
  - Sepsis [Fatal]

NARRATIVE: CASE EVENT DATE: 20180712
